FAERS Safety Report 24811948 (Version 1)
Quarter: 2025Q1

REPORT INFORMATION
  Report Type: Spontaneous
  Country: US (occurrence: US)
  Receive Date: 20250106
  Receipt Date: 20250106
  Transmission Date: 20250408
  Serious: No
  Sender: BRAINTREE
  Company Number: US-BRAINTREE LABORATORIES, INC.-2024BTE00211

PATIENT
  Age: 49 Year
  Sex: Female
  Weight: 77.098 kg

DRUGS (3)
  1. SUTAB [Suspect]
     Active Substance: MAGNESIUM SULFATE\POTASSIUM CHLORIDE\SODIUM SULFATE
     Indication: Colonoscopy
     Route: 048
     Dates: start: 20240414, end: 20240414
  2. OZEMPIC [Concomitant]
     Active Substance: SEMAGLUTIDE
  3. UNSPECIFIED CANCER PREVENTION MEDICATION [Concomitant]
     Dosage: UNK, 1X/DAY FOR 5 YEARS

REACTIONS (1)
  - Vomiting [Recovered/Resolved]

NARRATIVE: CASE EVENT DATE: 20240414
